FAERS Safety Report 23181325 (Version 1)
Quarter: 2023Q4

REPORT INFORMATION
  Report Type: Spontaneous
  Country: JP (occurrence: JP)
  Receive Date: 20231114
  Receipt Date: 20231114
  Transmission Date: 20240110
  Serious: Yes (Hospitalization)
  Sender: FDA-Public Use
  Company Number: JP-TEVA-2023-JP-2944344

PATIENT
  Age: 65 Year
  Sex: Female

DRUGS (5)
  1. AMLODIPINE [Suspect]
     Active Substance: AMLODIPINE BESYLATE
     Indication: Hypertension
     Dosage: 5 MILLIGRAM DAILY;
     Route: 065
  2. DOXAZOSIN [Suspect]
     Active Substance: DOXAZOSIN MESYLATE
     Indication: Hypertension
     Dosage: 1 MILLIGRAM DAILY;
     Route: 065
  3. PITAVASTATIN [Suspect]
     Active Substance: PITAVASTATIN
     Indication: Hyperlipidaemia
     Dosage: 2 MILLIGRAM DAILY;
     Route: 065
  4. LISINOPRIL [Suspect]
     Active Substance: LISINOPRIL
     Indication: Hypertension
     Dosage: 20 MILLIGRAM DAILY;
     Route: 065
  5. PHOSPHOLIPID [Suspect]
     Active Substance: PHOSPHOLIPID
     Indication: Hyperlipidaemia
     Dosage: 500 MILLIGRAM DAILY;
     Route: 065

REACTIONS (1)
  - Angioedema [Recovered/Resolved]
